FAERS Safety Report 10473829 (Version 2)
Quarter: 2014Q3

REPORT INFORMATION
  Report Type: Report from Study
  Country: US (occurrence: US)
  Receive Date: 20140924
  Receipt Date: 20140924
  Transmission Date: 20150326
  Serious: Yes (Life-Threatening)
  Sender: FDA-Public Use
  Company Number: PHEH2014US015760

PATIENT
  Age: 72 Year
  Sex: Male

DRUGS (1)
  1. ZYKADIA [Suspect]
     Active Substance: CERITINIB
     Indication: LUNG NEOPLASM MALIGNANT
     Dosage: 750 MG, QD
     Route: 048
     Dates: start: 20140730

REACTIONS (9)
  - Dyspnoea [Unknown]
  - Neck pain [Unknown]
  - Nausea [Not Recovered/Not Resolved]
  - Diarrhoea [Recovered/Resolved]
  - Decreased appetite [Not Recovered/Not Resolved]
  - Chest pain [Unknown]
  - Weight decreased [Unknown]
  - Pneumothorax [Unknown]
  - Anaemia [Unknown]

NARRATIVE: CASE EVENT DATE: 20140731
